FAERS Safety Report 21105589 (Version 1)
Quarter: 2022Q3

REPORT INFORMATION
  Report Type: Spontaneous
  Country: JP (occurrence: JP)
  Receive Date: 20220720
  Receipt Date: 20220720
  Transmission Date: 20221027
  Serious: Yes (Other)
  Sender: FDA-Public Use
  Company Number: JP-BAUSCH-BL-2022-012889

PATIENT
  Age: 68 Year
  Sex: Female

DRUGS (4)
  1. CARTEOLOL HYDROCHLORIDE [Suspect]
     Active Substance: CARTEOLOL HYDROCHLORIDE
     Indication: Normal tension glaucoma
     Route: 047
  2. TIMOLOL MALEATE [Suspect]
     Active Substance: TIMOLOL MALEATE
     Indication: Normal tension glaucoma
     Route: 047
  3. TIMOLOL MALEATE [Suspect]
     Active Substance: TIMOLOL MALEATE
  4. TAFLUPROST [Suspect]
     Active Substance: TAFLUPROST
     Indication: Normal tension glaucoma
     Route: 047

REACTIONS (3)
  - Dacryocystitis [Recovering/Resolving]
  - Instillation site dryness [Unknown]
  - Instillation site pain [Unknown]
